FAERS Safety Report 15278277 (Version 2)
Quarter: 2018Q3

REPORT INFORMATION
  Report Type: Spontaneous
  Country: US (occurrence: US)
  Receive Date: 20180814
  Receipt Date: 20180824
  Transmission Date: 20181010
  Serious: Yes (Death, Hospitalization, Other)
  Sender: FDA-Public Use
  Company Number: US-B.I. PHARMACEUTICALS,INC./RIDGEFIELD-2018-BI-040975

PATIENT
  Age: 87 Year
  Sex: Male

DRUGS (1)
  1. PRADAXA [Suspect]
     Active Substance: DABIGATRAN ETEXILATE MESYLATE
     Indication: ATRIAL FIBRILLATION
     Dosage: START DATE: 2007 OR 2008
     Route: 065
     Dates: end: 201701

REACTIONS (3)
  - Gastric haemorrhage [Unknown]
  - Limb injury [Unknown]
  - Death [Fatal]

NARRATIVE: CASE EVENT DATE: 2017
